FAERS Safety Report 7274831-7 (Version None)
Quarter: 2011Q1

REPORT INFORMATION
  Report Type: 
  Country: None (occurrence: None)
  Receive Date: 20110204
  Receipt Date: 20110124
  Transmission Date: 20110831
  Serious: Yes (Other)
  Sender: FDA-Public Use
  Company Number: FR-PFIZER INC-2010145963

PATIENT
  Age: 49 Year
  Sex: Female

DRUGS (10)
  1. FLUOROURACIL [Concomitant]
     Indication: BREAST CANCER
     Dosage: 500 MG, UNK
     Dates: start: 20100101
  2. EPIRUBICIN [Concomitant]
     Indication: BREAST CANCER
     Dosage: 100 MG, UNK
     Dates: start: 20100101
  3. ZANTAC [Suspect]
     Indication: PREMEDICATION
     Dosage: 50 MG, 3 COURSES
     Route: 042
     Dates: start: 20100825, end: 20101006
  4. CYCLOPHOSPHAMIDE [Concomitant]
     Indication: BREAST CANCER
     Dosage: UNK
     Dates: start: 20100101
  5. TAXOTERE [Suspect]
     Indication: BREAST CANCER
     Dosage: 155 MG, 3 COURSES
     Route: 042
     Dates: start: 20100825, end: 20101006
  6. ARANESP [Concomitant]
     Dosage: UNK
     Route: 058
  7. TARDYFERON [Concomitant]
     Route: 048
  8. DEXAMETHASONE [Suspect]
     Indication: PREMEDICATION
     Dosage: 20 MG, 3 COURSES
     Route: 042
     Dates: start: 20100825, end: 20101006
  9. ATARAX [Suspect]
     Indication: PREMEDICATION
     Dosage: 25 MG, 3 COURSES
     Route: 042
     Dates: start: 20100825, end: 20101006
  10. ZOPHREN [Suspect]
     Indication: PREMEDICATION
     Dosage: 8 MG, 3 COURSES
     Dates: start: 20100825, end: 20101006

REACTIONS (2)
  - PARAESTHESIA [None]
  - MYALGIA [None]
